FAERS Safety Report 6203025-9 (Version None)
Quarter: 2009Q2

REPORT INFORMATION
  Report Type: 
  Country: None (occurrence: None)
  Receive Date: 20090527
  Receipt Date: 20090518
  Transmission Date: 20091009
  Serious: Yes (Other)
  Sender: FDA-Public Use
  Company Number: US-RANBAXY-2009US-23483

PATIENT

DRUGS (1)
  1. ISOTRETINOIN [Suspect]
     Indication: ACNE
     Dosage: 30 MG, UNK
     Route: 048
     Dates: start: 20081211, end: 20090417

REACTIONS (3)
  - ABDOMINAL PAIN [None]
  - RECTAL FISSURE [None]
  - RECTAL HAEMORRHAGE [None]
